FAERS Safety Report 7512789-3 (Version None)
Quarter: 2011Q2

REPORT INFORMATION
  Report Type: 
  Country: None (occurrence: None)
  Receive Date: 20110531
  Receipt Date: 20110516
  Transmission Date: 20111010
  Serious: Yes (Other)
  Sender: FDA-Public Use
  Company Number: B0719832A

PATIENT
  Sex: Female

DRUGS (1)
  1. PAROXETINE HCL [Suspect]
     Indication: ANXIETY
     Route: 048
     Dates: start: 20010101

REACTIONS (16)
  - ANGER [None]
  - PARAESTHESIA [None]
  - THERAPY CESSATION [None]
  - HYPERHIDROSIS [None]
  - TREMOR [None]
  - SELF-INJURIOUS IDEATION [None]
  - ANTISOCIAL BEHAVIOUR [None]
  - VERTIGO [None]
  - RECURRING SKIN BOILS [None]
  - DEPRESSED MOOD [None]
  - MALAISE [None]
  - AMNESIA [None]
  - NERVOUSNESS [None]
  - HEADACHE [None]
  - ABNORMAL DREAMS [None]
  - WITHDRAWAL SYNDROME [None]
